FAERS Safety Report 16978813 (Version 1)
Quarter: 2019Q4

REPORT INFORMATION
  Report Type: Spontaneous
  Country: CN (occurrence: CN)
  Receive Date: 20191031
  Receipt Date: 20191031
  Transmission Date: 20200122
  Serious: Yes (Other)
  Sender: FDA-Public Use
  Company Number: CN-PFIZER INC-2019467826

PATIENT
  Age: 70 Year
  Sex: Female
  Weight: 46 kg

DRUGS (1)
  1. SOLU-MEDROL [Suspect]
     Active Substance: METHYLPREDNISOLONE SODIUM SUCCINATE
     Indication: DERMATOMYOSITIS
     Dosage: 40 MG, 1X/DAY
     Route: 041
     Dates: start: 20191012

REACTIONS (3)
  - Chest discomfort [Unknown]
  - Bradycardia [Recovering/Resolving]
  - Sinus bradycardia [Unknown]

NARRATIVE: CASE EVENT DATE: 20191015
